FAERS Safety Report 18627201 (Version 1)
Quarter: 2020Q4

REPORT INFORMATION
  Report Type: Spontaneous
  Country: US (occurrence: US)
  Receive Date: 20201216
  Receipt Date: 20201216
  Transmission Date: 20210114
  Serious: Yes (Hospitalization, Other)
  Sender: FDA-Public Use
  Company Number: None

PATIENT
  Age: 72 Year
  Sex: Male

DRUGS (1)
  1. LISINOPRIL (LISINOPRIL 10MG TAB) [Suspect]
     Active Substance: LISINOPRIL
     Indication: HYPERTENSION
     Route: 048
     Dates: start: 20110701

REACTIONS (7)
  - Prescribed overdose [None]
  - Blood urea increased [None]
  - Hyperkalaemia [None]
  - Hypophagia [None]
  - Blood creatinine increased [None]
  - Acute kidney injury [None]
  - Wrong technique in product usage process [None]

NARRATIVE: CASE EVENT DATE: 20201007
